FAERS Safety Report 24338572 (Version 1)
Quarter: 2024Q3

REPORT INFORMATION
  Report Type: Spontaneous
  Country: US (occurrence: US)
  Receive Date: 20240919
  Receipt Date: 20240919
  Transmission Date: 20241017
  Serious: Yes (Hospitalization, Other)
  Sender: SANOFI AVENTIS
  Company Number: US-SA-2024SA269969

PATIENT
  Age: 53 Year
  Sex: Female
  Weight: 84.09 kg

DRUGS (10)
  1. DUPIXENT [Suspect]
     Active Substance: DUPILUMAB
     Dosage: 300 MG, QOW
     Route: 058
  2. OMEPRAZOLE [Concomitant]
     Active Substance: OMEPRAZOLE
  3. CYCLOBENZAPRINE [Concomitant]
     Active Substance: CYCLOBENZAPRINE
  4. CLONAZEPAM [Concomitant]
     Active Substance: CLONAZEPAM
  5. LISINOPRIL [Concomitant]
     Active Substance: LISINOPRIL
  6. ESZOPICLONE [Concomitant]
     Active Substance: ESZOPICLONE
  7. CITALOPRAM [Concomitant]
     Active Substance: CITALOPRAM\CITALOPRAM HYDROBROMIDE
  8. NP THYROID [Concomitant]
     Active Substance: LEVOTHYROXINE\LIOTHYRONINE
  9. ESTRADIOL [Concomitant]
     Active Substance: ESTRADIOL
  10. BUSPIRONE [Concomitant]
     Active Substance: BUSPIRONE HYDROCHLORIDE

REACTIONS (6)
  - Abscess intestinal [Unknown]
  - Diverticulitis [Unknown]
  - Post-traumatic stress disorder [Not Recovered/Not Resolved]
  - Palpitations [Unknown]
  - Respiration abnormal [Unknown]
  - Rash [Unknown]
